FAERS Safety Report 7998384-0 (Version None)
Quarter: 2011Q4

REPORT INFORMATION
  Report Type: 
  Country: None (occurrence: None)
  Receive Date: 20111221
  Receipt Date: 20110907
  Transmission Date: 20120403
  Serious: No
  Sender: FDA-Public Use
  Company Number: US-GLAXOSMITHKLINE-A0943709A

PATIENT
  Age: 67 Year
  Sex: Male

DRUGS (6)
  1. LOVAZA [Suspect]
     Indication: BLOOD TRIGLYCERIDES INCREASED
     Dosage: 1CAP TWICE PER DAY
     Route: 048
     Dates: start: 20100901, end: 20110801
  2. XANAX [Concomitant]
  3. NASAL SPRAY [Concomitant]
  4. ANTIHISTAMINE [Concomitant]
  5. OMEPRAZOLE [Concomitant]
  6. ACETAMINOPHEN [Concomitant]

REACTIONS (4)
  - BLOOD TRIGLYCERIDES INCREASED [None]
  - FLATULENCE [None]
  - COMPUTERISED TOMOGRAM ABNORMAL [None]
  - ABDOMINAL PAIN UPPER [None]
